FAERS Safety Report 8078541-8 (Version None)
Quarter: 2012Q1

REPORT INFORMATION
  Report Type: 
  Country: None (occurrence: None)
  Receive Date: 20120123
  Receipt Date: 20120110
  Transmission Date: 20120608
  Serious: Yes (Other)
  Sender: FDA-Public Use
  Company Number: 1112202

PATIENT
  Age: 48 Year
  Sex: Male

DRUGS (5)
  1. CAPECITABINE [Suspect]
     Indication: COLON CANCER METASTATIC
  2. IRINOTECAN HYDROCHLORIDE [Suspect]
     Indication: GASTROINTESTINAL CARCINOMA
     Dates: end: 20110809
  3. FLUOROURACIL [Suspect]
     Indication: GASTROINTESTINAL CARCINOMA
     Dates: end: 20110809
  4. AVASTIN /00848101/ [Suspect]
     Indication: GASTROINTESTINAL CARCINOMA
     Dates: end: 20110727
  5. OXALIPLATIN [Suspect]
     Indication: COLON CANCER METASTATIC

REACTIONS (4)
  - SPORTS INJURY [None]
  - COLON CANCER METASTATIC [None]
  - HAND FRACTURE [None]
  - NEOPLASM PROGRESSION [None]
